FAERS Safety Report 19459017 (Version 1)
Quarter: 2021Q2

REPORT INFORMATION
  Report Type: Spontaneous
  Country: US (occurrence: US)
  Receive Date: 20210625
  Receipt Date: 20210625
  Transmission Date: 20210717
  Serious: Yes (Disabling)
  Sender: FDA-Public Use
  Company Number: None

PATIENT
  Age: 61 Year
  Sex: Female
  Weight: 87.75 kg

DRUGS (10)
  1. LOSARTIN [Concomitant]
     Active Substance: LOSARTAN
  2. MONTELUKAST [Concomitant]
     Active Substance: MONTELUKAST SODIUM
  3. ASPIRIN 81MG [Concomitant]
     Active Substance: ASPIRIN
  4. MAGNESIUM [Concomitant]
     Active Substance: MAGNESIUM
  5. BASAGLAR [Concomitant]
     Active Substance: INSULIN GLARGINE
  6. JARDIANCE [Suspect]
     Active Substance: EMPAGLIFLOZIN
     Indication: DIABETES MELLITUS
     Dosage: ?          QUANTITY:1 TABLET(S);?
     Route: 048
     Dates: start: 20210417, end: 20210504
  7. ATORVASTATIN [Concomitant]
     Active Substance: ATORVASTATIN
  8. AZITHROMYCIN ANHYDROUS. [Concomitant]
     Active Substance: AZITHROMYCIN ANHYDROUS
  9. TYLENOL [Concomitant]
     Active Substance: ACETAMINOPHEN
  10. METFORMIN [Concomitant]
     Active Substance: METFORMIN HYDROCHLORIDE

REACTIONS (4)
  - Arthropathy [None]
  - Muscle contractions involuntary [None]
  - Screaming [None]
  - Muscle disorder [None]

NARRATIVE: CASE EVENT DATE: 20210501
